FAERS Safety Report 14266666 (Version 1)
Quarter: 2017Q4

REPORT INFORMATION
  Report Type: Spontaneous
  Country: US (occurrence: US)
  Receive Date: 20171211
  Receipt Date: 20171211
  Transmission Date: 20180321
  Serious: No
  Sender: FDA-Public Use
  Company Number: US-B.I. PHARMACEUTICALS,INC./RIDGEFIELD-2017-BI-064733

PATIENT
  Age: 56 Year
  Sex: Female

DRUGS (2)
  1. VENTOLIN HFA [Concomitant]
     Active Substance: ALBUTEROL SULFATE
     Indication: CHRONIC OBSTRUCTIVE PULMONARY DISEASE
     Dosage: 2 PUFF EVERY 4-6 HOURS AS NEEDED;  FORM STRENGTH: 90MCG; FORMULATION: INHALATION SPRAY
     Route: 055
  2. SPIRIVA [Suspect]
     Active Substance: TIOTROPIUM BROMIDE MONOHYDRATE
     Indication: CHRONIC OBSTRUCTIVE PULMONARY DISEASE
     Dosage: ONCE DAILY;FORM STREN:18MCG;FORM:CAPSULE ADMINI CORRECT?YES,ACTION TAKEN WITH PRODUCT:DRUG WITHDRAWN
     Route: 055
     Dates: start: 2010, end: 201710

REACTIONS (4)
  - Dyspnoea [Recovered/Resolved]
  - Cyanosis [Recovered/Resolved]
  - Weight decreased [Unknown]
  - Bone pain [Recovered/Resolved]

NARRATIVE: CASE EVENT DATE: 201610
